FAERS Safety Report 14965183 (Version 2)
Quarter: 2018Q2

REPORT INFORMATION
  Report Type: Spontaneous
  Country: JP (occurrence: JP)
  Receive Date: 20180601
  Receipt Date: 20180608
  Transmission Date: 20180711
  Serious: Yes (Other)
  Sender: FDA-Public Use
  Company Number: JP-BAYER-2018-103428

PATIENT
  Age: 91 Year
  Sex: Male

DRUGS (12)
  1. STAYBLA [Concomitant]
     Active Substance: IMIDAFENACIN
     Dosage: DAILY DOSE .2 MG
     Route: 048
  2. BUFFERIN ARTHRITIS [Concomitant]
     Active Substance: ASPIRIN
     Dosage: DAILY DOSE 81 MG
     Route: 048
  3. BIOFERMIN [Concomitant]
     Active Substance: BACILLUS SUBTILIS\LACTOBACILLUS ACIDOPHILUS\STREPTOCOCCUS FAECAIS
  4. SULTANOL [Concomitant]
     Active Substance: ALBUTEROL SULFATE
  5. NEXIUM [Concomitant]
     Active Substance: ESOMEPRAZOLE MAGNESIUM
     Dosage: DAILY DOSE 20 MG
     Route: 048
  6. HARNAL [Concomitant]
     Active Substance: TAMSULOSIN HYDROCHLORIDE
     Dosage: DAILY DOSE .2 MG
     Route: 048
  7. HERBESSER [Concomitant]
     Active Substance: DILTIAZEM HYDROCHLORIDE
     Dosage: DAILY DOSE 100 MG
     Route: 048
  8. MICARDIS [Concomitant]
     Active Substance: TELMISARTAN
     Dosage: DAILY DOSE 40 MG
     Route: 048
  9. CYMBALTA [Suspect]
     Active Substance: DULOXETINE HYDROCHLORIDE
     Indication: DEPRESSION
     Dosage: DAILY DOSE 20 MG
     Route: 048
     Dates: start: 20130914, end: 20180412
  10. MAGNESIUM OXIDE. [Concomitant]
     Active Substance: MAGNESIUM OXIDE
  11. HOKUNALIN [Concomitant]
     Active Substance: TULOBUTEROL
  12. CLARITIN [Suspect]
     Active Substance: LORATADINE
     Dosage: UNK
     Route: 048

REACTIONS (4)
  - Head discomfort [None]
  - Nightmare [None]
  - Malaise [None]
  - Delirium [Recovering/Resolving]

NARRATIVE: CASE EVENT DATE: 20180410
